FAERS Safety Report 6690268-3 (Version None)
Quarter: 2010Q2

REPORT INFORMATION
  Report Type: 
  Country: None (occurrence: None)
  Receive Date: 20100421
  Receipt Date: 20100413
  Transmission Date: 20101027
  Serious: Yes (Death)
  Sender: FDA-Public Use
  Company Number: DE-ROCHE-697951

PATIENT
  Sex: Female
  Weight: 85 kg

DRUGS (2)
  1. BEVACIZUMAB [Suspect]
     Dosage: APPLICATIONS ON 29-MAR-2010 AND ON 8-APR-2010
     Route: 042
     Dates: start: 20100329, end: 20100408
  2. PACLITAXEL [Suspect]
     Route: 042
     Dates: start: 20100329, end: 20100408

REACTIONS (1)
  - DEATH [None]
